FAERS Safety Report 4409843-1 (Version None)
Quarter: 2004Q3

REPORT INFORMATION
  Report Type: 
  Country: None (occurrence: None)
  Receive Date: 20040728
  Receipt Date: 20030814
  Transmission Date: 20050211
  Serious: No
  Sender: FDA-Public Use
  Company Number: 200301827

PATIENT
  Age: 74 Year
  Sex: Male

DRUGS (4)
  1. DYAZIDE [Suspect]
     Indication: DIURETIC THERAPY
     Route: 048
     Dates: end: 20030708
  2. EXTRA STRENGTH TYLENOL [Suspect]
     Indication: BACK PAIN
     Route: 048
     Dates: start: 20030703, end: 20030709
  3. COZAAR [Suspect]
     Indication: HYPERTENSION
     Route: 048
     Dates: end: 20030706
  4. HYDROCODONE BITARTRATE WITH ACETAMINOPHEN [Suspect]
     Indication: BACK PAIN
     Route: 048
     Dates: start: 20030610, end: 20030709

REACTIONS (1)
  - PRURITUS [None]
